FAERS Safety Report 13696765 (Version 1)
Quarter: 2017Q2

REPORT INFORMATION
  Report Type: Spontaneous
  Country: US (occurrence: US)
  Receive Date: 20170627
  Receipt Date: 20170627
  Transmission Date: 20170830
  Serious: Yes (Other)
  Sender: FDA-Public Use
  Company Number: None

PATIENT
  Age: 52 Year
  Sex: Female
  Weight: 63 kg

DRUGS (9)
  1. SEROQUEL [Concomitant]
     Active Substance: QUETIAPINE FUMARATE
  2. PAPAYA ENZYME [Concomitant]
  3. CLONAZEPAM. [Suspect]
     Active Substance: CLONAZEPAM
     Indication: PANIC ATTACK
     Dosage: ?          OTHER STRENGTH:MG;QUANTITY:1 TABLET(S);?
  4. CLONAZEPAM. [Suspect]
     Active Substance: CLONAZEPAM
     Indication: ANXIETY
     Dosage: ?          OTHER STRENGTH:MG;QUANTITY:1 TABLET(S);?
  5. VALIUM [Concomitant]
     Active Substance: DIAZEPAM
  6. CENTRUM SILVER [Concomitant]
     Active Substance: MINERALS\VITAMINS
  7. PROBIOTIC [Concomitant]
     Active Substance: PROBIOTICS NOS
  8. PROPRANOLOL [Concomitant]
     Active Substance: PROPRANOLOL HYDROCHLORIDE
  9. PRILOSEC [Concomitant]
     Active Substance: OMEPRAZOLE MAGNESIUM

REACTIONS (20)
  - Migraine [None]
  - Drug withdrawal syndrome [None]
  - Tremor [None]
  - Depression [None]
  - Panic attack [None]
  - Skin burning sensation [None]
  - Generalised tonic-clonic seizure [None]
  - Insomnia [None]
  - Nervousness [None]
  - Hypophagia [None]
  - Gait disturbance [None]
  - Asthenia [None]
  - Suicidal ideation [None]
  - Fatigue [None]
  - Body temperature fluctuation [None]
  - Impaired driving ability [None]
  - Loss of personal independence in daily activities [None]
  - Hyperhidrosis [None]
  - Amnesia [None]
  - Anxiety [None]

NARRATIVE: CASE EVENT DATE: 20140910
